FAERS Safety Report 4733083-X (Version None)
Quarter: 2005Q3

REPORT INFORMATION
  Report Type: 
  Country: None (occurrence: None)
  Receive Date: 20050725
  Receipt Date: 20040720
  Transmission Date: 20060218
  Serious: Yes (Death)
  Sender: FDA-Public Use
  Company Number: USA-2004-0016148

PATIENT
  Age: 39 Year
  Sex: Female
  Weight: 105.7 kg

DRUGS (11)
  1. MORPHINE SULFATE [Suspect]
     Dosage: 0 MG
  2. HYDROCODONE (HYDROCODONE) [Suspect]
  3. VICODIN [Suspect]
  4. ACETAMINOPHEN [Suspect]
  5. TRAZODONE (TRAZODONE) [Suspect]
  6. ALPRAZOLAM [Suspect]
  7. DIAZEPAM [Suspect]
  8. OXAZEPAM [Suspect]
  9. TEMAZEPAM [Suspect]
  10. CAFFEINE (CAFFEINE) [Suspect]
  11. NICOTINE [Suspect]

REACTIONS (2)
  - ACCIDENTAL OVERDOSE [None]
  - MULTIPLE DRUG OVERDOSE [None]
